FAERS Safety Report 5362499-6 (Version None)
Quarter: 2007Q2

REPORT INFORMATION
  Report Type: 
  Country: None (occurrence: None)
  Receive Date: 20070619
  Receipt Date: 20070618
  Transmission Date: 20071010
  Serious: Yes (Other)
  Sender: FDA-Public Use
  Company Number: TR-BRISTOL-MYERS SQUIBB COMPANY-13794045

PATIENT
  Age: 31 Year
  Sex: Female

DRUGS (2)
  1. BARACLUDE [Suspect]
     Indication: HEPATITIS B
     Dosage: STOPPED ON 01-JUN-2007 AND RESTARTED ON 04-JUN-2007
     Route: 048
     Dates: start: 20070430
  2. CIPRAM [Concomitant]
     Route: 048
     Dates: start: 20070607

REACTIONS (2)
  - MYALGIA [None]
  - PAIN IN EXTREMITY [None]
